FAERS Safety Report 6541688-9 (Version None)
Quarter: 2010Q1

REPORT INFORMATION
  Report Type: 
  Country: None (occurrence: None)
  Receive Date: 20100119
  Receipt Date: 20100109
  Transmission Date: 20100710
  Serious: Yes (Hospitalization, Other)
  Sender: FDA-Public Use
  Company Number: US-AMGEN-QUU382465

PATIENT
  Sex: Female

DRUGS (3)
  1. ENBREL [Suspect]
     Indication: PSORIATIC ARTHROPATHY
     Route: 058
     Dates: start: 20070101
  2. ENBREL [Suspect]
     Indication: PSORIASIS
  3. UNSPECIFIED PAIN MEDICATION [Concomitant]

REACTIONS (9)
  - ADVERSE DRUG REACTION [None]
  - ANKLE FRACTURE [None]
  - ARTHRALGIA [None]
  - BONE CYST [None]
  - CONFUSIONAL STATE [None]
  - FALL [None]
  - PAIN [None]
  - PSORIASIS [None]
  - TIBIA FRACTURE [None]
